FAERS Safety Report 16255430 (Version 3)
Quarter: 2020Q3

REPORT INFORMATION
  Report Type: Spontaneous
  Country: US (occurrence: US)
  Receive Date: 20190430
  Receipt Date: 20200805
  Transmission Date: 20201102
  Serious: No
  Sender: FDA-Public Use
  Company Number: US-VERTEX PHARMACEUTICALS-2019-003753

PATIENT
  Sex: Male

DRUGS (1)
  1. ORKAMBI [Suspect]
     Active Substance: IVACAFTOR\LUMACAFTOR
     Indication: CYSTIC FIBROSIS
     Dosage: 100?125 MG, FREQUENCY UNKNOWN
     Route: 048
     Dates: start: 20190427, end: 20190829

REACTIONS (2)
  - Weight gain poor [Unknown]
  - Illness [Unknown]

NARRATIVE: CASE EVENT DATE: 2019
